FAERS Safety Report 14621190 (Version 1)
Quarter: 2018Q1

REPORT INFORMATION
  Report Type: Spontaneous
  Country: US (occurrence: US)
  Receive Date: 20180310
  Receipt Date: 20180310
  Transmission Date: 20180509
  Serious: No
  Sender: FDA-Public Use
  Company Number: US-ASTRAZENECA-2018SE26602

PATIENT
  Sex: Female

DRUGS (3)
  1. SEROQUEL [Suspect]
     Active Substance: QUETIAPINE FUMARATE
     Dosage: UNKNOWN
     Route: 048
  2. SEROQUEL [Suspect]
     Active Substance: QUETIAPINE FUMARATE
     Dosage: GENERIC2.0DF UNKNOWN
     Route: 048
  3. SEROQUEL [Suspect]
     Active Substance: QUETIAPINE FUMARATE
     Dosage: SHE TOOK ONLY TWO 25 MG TABLETS OF SEROQUEL AND TAKES A THIRD 25 MG TABLET SOMETIMES IF NEEDED
     Route: 048
     Dates: start: 1998

REACTIONS (4)
  - Tooth disorder [Recovered/Resolved]
  - Mania [Recovered/Resolved]
  - Insomnia [Recovered/Resolved]
  - Intentional product misuse [Unknown]

NARRATIVE: CASE EVENT DATE: 201708
